FAERS Safety Report 7341398 (Version 4)
Quarter: 2013Q2

REPORT INFORMATION
  Report Type: Spontaneous
  Country: US (occurrence: US)
  Receive Date: 20100401
  Receipt Date: 20130528
  Transmission Date: 20140414
  Serious: Yes (Hospitalization, Other)
  Sender: FDA-Public Use
  Company Number: PHEH2010US03252

PATIENT
  Sex: Female

DRUGS (15)
  1. TRILEPTAL [Suspect]
     Dosage: 150 MG, UNK
     Dates: start: 2000
  2. SIMVASTATIN [Suspect]
     Dosage: 40 MG, 1X A DAY
  3. LORAZEPAM [Suspect]
     Dosage: UNK (1 TABLET AS NEEDED)
  4. FLUOXETINE [Suspect]
     Dosage: 20 MG, 1X A DAY
  5. NEXIUM [Suspect]
     Dosage: UNK UKN, UNK
  6. ACIPHEX [Suspect]
     Dosage: UNK UKN, UNK
  7. PROTONIX [Suspect]
     Dosage: UNK UKN, UNK
  8. CATAPRES [Suspect]
     Dosage: UNK (AS NEEDED)
  9. AVAPRO [Suspect]
     Dosage: UNK UKN, UNK
  10. ASPIRIN [Suspect]
     Dosage: UNK ( 1X A DAY)
  11. NORVASC [Suspect]
     Dosage: UNK (8TH OF A 10MG TABLET)
  12. PLAVIX [Concomitant]
     Dosage: UNK UKN, UNK
  13. LIDODERM [Concomitant]
     Dosage: UNK UKN, UNK
  14. PRAVASTATIN [Concomitant]
     Dosage: UNK UKN, UNK
  15. CLONIDINE [Concomitant]
     Dosage: UNK UKN, UNK

REACTIONS (6)
  - Blood pressure fluctuation [Unknown]
  - Autoimmune disorder [Unknown]
  - Convulsion [Unknown]
  - Orthostatic hypertension [Unknown]
  - Sleep disorder [Unknown]
  - Hypotension [Unknown]
